FAERS Safety Report 9118600 (Version 1)
Quarter: 2013Q1

REPORT INFORMATION
  Report Type: Spontaneous
  Country: DE (occurrence: DE)
  Receive Date: 20130226
  Receipt Date: 20130226
  Transmission Date: 20140127
  Serious: Yes (Hospitalization, Other)
  Sender: FDA-Public Use
  Company Number: DE-AMGEN-DEUSP2013012686

PATIENT
  Age: 54 Year
  Sex: Female

DRUGS (4)
  1. ENBREL [Suspect]
     Indication: RHEUMATOID ARTHRITIS
     Dosage: 50 MG, WEEKLY
     Dates: start: 20111208, end: 201210
  2. ENBREL [Suspect]
     Dosage: 50 MG, WEEKLY
     Dates: start: 201212
  3. CORTISONE [Concomitant]
     Dosage: UNK
  4. IBUPROFEN [Concomitant]
     Dosage: UNK

REACTIONS (3)
  - Osteonecrosis [Unknown]
  - Hip arthroplasty [Unknown]
  - Rheumatoid arthritis [Unknown]
